FAERS Safety Report 23867194 (Version 4)
Quarter: 2024Q4

REPORT INFORMATION
  Report Type: Spontaneous
  Country: US (occurrence: US)
  Receive Date: 20240517
  Receipt Date: 20241204
  Transmission Date: 20250114
  Serious: Yes (Other)
  Sender: PFIZER
  Company Number: US-PFIZER INC-202400107598

PATIENT
  Age: 5 Year
  Sex: Female
  Weight: 16.78 kg

DRUGS (1)
  1. GENOTROPIN [Suspect]
     Active Substance: SOMATROPIN
     Indication: Turner^s syndrome
     Dosage: 1 MG EVERY NIGHT
     Dates: start: 2019

REACTIONS (5)
  - Drug dose omission by device [Unknown]
  - Device use issue [Unknown]
  - Hepatic enzyme increased [Unknown]
  - Device breakage [Unknown]
  - Device malfunction [Unknown]

NARRATIVE: CASE EVENT DATE: 20240513
